FAERS Safety Report 8361669-2 (Version None)
Quarter: 2012Q2

REPORT INFORMATION
  Report Type: 
  Country: None (occurrence: None)
  Receive Date: 20120515
  Receipt Date: 20111107
  Transmission Date: 20120825
  Serious: No
  Sender: FDA-Public Use
  Company Number: US-ABBOTT-11P-163-0872318-00

PATIENT
  Sex: Female

DRUGS (1)
  1. PROMETRIUM [Suspect]
     Indication: INFERTILITY
     Dates: start: 20111104, end: 20111104

REACTIONS (6)
  - INFERTILITY [None]
  - EYE SWELLING [None]
  - FOOD ALLERGY [None]
  - PRURITUS [None]
  - URTICARIA [None]
  - OFF LABEL USE [None]
